FAERS Safety Report 16599481 (Version 1)
Quarter: 2019Q3

REPORT INFORMATION
  Report Type: Report from Study
  Country: None (occurrence: CO)
  Receive Date: 20190719
  Receipt Date: 20190719
  Transmission Date: 20191004
  Serious: Yes (Hospitalization, Other)
  Sender: FDA-Public Use
  Company Number: CO-ABBVIE-19K-036-2717625-00

PATIENT
  Age: 55 Year
  Sex: Male

DRUGS (1)
  1. HUMIRA [Suspect]
     Active Substance: ADALIMUMAB
     Indication: CROHN^S DISEASE
     Route: 058
     Dates: end: 20190304

REACTIONS (7)
  - Gait disturbance [Not Recovered/Not Resolved]
  - Transurethral prostatectomy [Recovering/Resolving]
  - Pyrexia [Not Recovered/Not Resolved]
  - Pollakiuria [Recovering/Resolving]
  - Arthralgia [Not Recovered/Not Resolved]
  - Weight decreased [Not Recovered/Not Resolved]
  - Spondylitis [Unknown]

NARRATIVE: CASE EVENT DATE: 201810
